FAERS Safety Report 9713986 (Version 2)
Quarter: 2015Q3

REPORT INFORMATION
  Report Type: Spontaneous
  Country: US (occurrence: US)
  Receive Date: 20131126
  Receipt Date: 20150803
  Transmission Date: 20151125
  Serious: No
  Sender: FDA-Public Use
  Company Number: US-GILEAD-2008-0018467

PATIENT
  Age: 83 Year
  Sex: Female
  Weight: 56.7 kg

DRUGS (6)
  1. DIAZEPAM. [Concomitant]
     Active Substance: DIAZEPAM
  2. MULTIVITAMIN [Concomitant]
     Active Substance: VITAMINS
  3. BONIVA [Concomitant]
     Active Substance: IBANDRONATE SODIUM
  4. LETAIRIS [Suspect]
     Active Substance: AMBRISENTAN
     Indication: PULMONARY ARTERIAL HYPERTENSION
     Route: 048
     Dates: start: 20080724
  5. ALBUTEROL. [Concomitant]
     Active Substance: ALBUTEROL
  6. GENEBS [Concomitant]

REACTIONS (2)
  - Ear congestion [None]
  - Nasal congestion [None]
